FAERS Safety Report 11636167 (Version 3)
Quarter: 2015Q4

REPORT INFORMATION
  Report Type: Report from Study
  Country: US (occurrence: US)
  Receive Date: 20151016
  Receipt Date: 20151023
  Transmission Date: 20160304
  Serious: Yes (Hospitalization)
  Sender: FDA-Public Use
  Company Number: US-ABBVIE-15K-163-1480497-00

PATIENT
  Age: 53 Year
  Sex: Male

DRUGS (1)
  1. HUMIRA [Suspect]
     Active Substance: ADALIMUMAB
     Indication: PSORIASIS
     Route: 065
     Dates: start: 20150520

REACTIONS (2)
  - Upper respiratory tract infection [Recovering/Resolving]
  - Supraventricular tachycardia [Recovering/Resolving]

NARRATIVE: CASE EVENT DATE: 2015
